FAERS Safety Report 26053560 (Version 1)
Quarter: 2025Q4

REPORT INFORMATION
  Report Type: Spontaneous
  Country: US (occurrence: None)
  Receive Date: 20251116
  Receipt Date: 20251116
  Transmission Date: 20260117
  Serious: Yes (Hospitalization)
  Sender: FDA-CTU
  Company Number: None

PATIENT
  Age: 28 Year
  Sex: Female
  Weight: 106 kg

DRUGS (2)
  1. MOUNJARO [Suspect]
     Active Substance: TIRZEPATIDE
     Indication: Type 2 diabetes mellitus
     Dosage: OTHER FREQUENCY : WEEKLY;?
     Route: 058
     Dates: start: 20240710, end: 20250830
  2. DIETARY SUPPLEMENT [Concomitant]
     Active Substance: DIETARY SUPPLEMENT

REACTIONS (2)
  - Constipation [None]
  - Bile duct stone [None]

NARRATIVE: CASE EVENT DATE: 20251002
